FAERS Safety Report 5990625-4 (Version None)
Quarter: 2008Q4

REPORT INFORMATION
  Report Type: 
  Country: None (occurrence: None)
  Receive Date: 20081211
  Receipt Date: 20081201
  Transmission Date: 20090506
  Serious: Yes (Life-Threatening, Hospitalization)
  Sender: FDA-Public Use
  Company Number: B0546825A

PATIENT
  Age: 35 Year
  Sex: Female
  Weight: 54.5 kg

DRUGS (11)
  1. BLINDED VACCINE [Suspect]
     Route: 030
     Dates: start: 20061117, end: 20061117
  2. CHANTIX [Suspect]
     Dosage: 1MG FOUR TIMES PER DAY
     Route: 048
     Dates: start: 20070423
  3. EFFEXOR [Concomitant]
     Indication: DEPRESSION
     Dosage: 300MG PER DAY
     Route: 048
     Dates: start: 20060628
  4. PAXIL [Concomitant]
     Indication: DEPRESSION
     Dosage: 40MG PER DAY
     Route: 048
     Dates: start: 20080801
  5. LAMICTAL [Concomitant]
     Indication: BIPOLAR DISORDER
     Dosage: 350MG PER DAY
     Route: 048
     Dates: start: 20080730
  6. KLONOPIN [Concomitant]
     Route: 048
  7. RISPERDAL [Concomitant]
     Indication: BIPOLAR DISORDER
     Dosage: 1MG AS REQUIRED
     Route: 048
     Dates: start: 20080727
  8. TRAZODONE HCL [Concomitant]
     Indication: INSOMNIA
     Route: 048
     Dates: start: 20080730
  9. SEROQUEL [Concomitant]
     Dosage: 24MG SINGLE DOSE
     Route: 048
     Dates: start: 20080716, end: 20080716
  10. ARTANE [Concomitant]
     Dosage: 50MG SINGLE DOSE
     Route: 048
     Dates: start: 20080716, end: 20080716
  11. KLONOPIN [Concomitant]
     Dosage: 10MG SINGLE DOSE
     Route: 048
     Dates: start: 20080716, end: 20080716

REACTIONS (2)
  - GAIT DISTURBANCE [None]
  - SUICIDE ATTEMPT [None]
